FAERS Safety Report 23364810 (Version 5)
Quarter: 2024Q2

REPORT INFORMATION
  Report Type: Report from Study
  Country: US (occurrence: US)
  Receive Date: 20240104
  Receipt Date: 20240425
  Transmission Date: 20240715
  Serious: Yes (Death, Hospitalization, Other)
  Sender: FDA-Public Use
  Company Number: US-TAKEDA-2023TUS120712

PATIENT
  Age: 63 Year
  Sex: Female

DRUGS (4)
  1. TEDUGLUTIDE [Suspect]
     Active Substance: TEDUGLUTIDE
     Indication: Short-bowel syndrome
     Dosage: 0.46 MILLILITER, QD
     Route: 058
     Dates: start: 202311
  2. TEDUGLUTIDE [Suspect]
     Active Substance: TEDUGLUTIDE
     Indication: Short-bowel syndrome
     Dosage: 0.46 MILLILITER, QD
     Route: 058
     Dates: start: 202311
  3. TEDUGLUTIDE [Suspect]
     Active Substance: TEDUGLUTIDE
     Indication: Short-bowel syndrome
     Dosage: 0.46 MILLILITER, QD
     Route: 058
     Dates: start: 202311
  4. TEDUGLUTIDE [Suspect]
     Active Substance: TEDUGLUTIDE
     Indication: Short-bowel syndrome
     Dosage: 0.46 MILLILITER, QD
     Route: 058
     Dates: start: 202311

REACTIONS (6)
  - Death [Fatal]
  - Short-bowel syndrome [Unknown]
  - Abdominal infection [Unknown]
  - Nausea [Unknown]
  - Blood pressure decreased [Unknown]
  - Blood potassium decreased [Unknown]

NARRATIVE: CASE EVENT DATE: 20240110
